FAERS Safety Report 20589711 (Version 1)
Quarter: 2022Q1

REPORT INFORMATION
  Report Type: Spontaneous
  Country: US (occurrence: None)
  Receive Date: 20220314
  Receipt Date: 20220314
  Transmission Date: 20220424
  Serious: Yes (Other)
  Sender: FDA-Public Use
  Company Number: None

PATIENT
  Age: 27 Year
  Sex: Male

DRUGS (1)
  1. UNSPECIFIED INGREDIENT [Suspect]
     Active Substance: UNSPECIFIED INGREDIENT
     Dosage: 1 OZ ONCE A DAY TOPICAL?
     Route: 061
     Dates: end: 20211224

REACTIONS (3)
  - Urticaria [None]
  - Hypersensitivity [None]
  - Blood immunoglobulin E increased [None]

NARRATIVE: CASE EVENT DATE: 20210816
